FAERS Safety Report 15630583 (Version 4)
Quarter: 2024Q3

REPORT INFORMATION
  Report Type: Spontaneous
  Country: IT (occurrence: IT)
  Receive Date: 20181119
  Receipt Date: 20240703
  Transmission Date: 20241017
  Serious: Yes (Hospitalization, Other)
  Sender: CSL BEHRING
  Company Number: IT-BEH-2018096926

PATIENT
  Age: 12 Year
  Sex: Male
  Weight: 36 kg

DRUGS (2)
  1. IDELVION [Suspect]
     Active Substance: COAGULATION FACTOR IX RECOMBINANT HUMAN
     Indication: Factor IX deficiency
     Dosage: 55 IU/KG (ALSO REPORTED AS 54 IU/KG) QW
     Route: 042
     Dates: start: 20180820, end: 20190118
  2. IDELVION [Suspect]
     Active Substance: COAGULATION FACTOR IX RECOMBINANT HUMAN
     Indication: Factor IX deficiency
     Dosage: 55 IU/KG (ALSO REPORTED AS 54 IU/KG) QW
     Route: 042
     Dates: start: 20180820, end: 20190118

REACTIONS (4)
  - Therapeutic product effect decreased [Not Recovered/Not Resolved]
  - Muscle haemorrhage [Recovering/Resolving]
  - Haematoma muscle [Not Recovered/Not Resolved]
  - Drug level decreased [Unknown]

NARRATIVE: CASE EVENT DATE: 20181001
